FAERS Safety Report 6889833-X (Version None)
Quarter: 2010Q3

REPORT INFORMATION
  Report Type: 
  Country: None (occurrence: None)
  Receive Date: 20100730
  Receipt Date: 20080515
  Transmission Date: 20110219
  Serious: No
  Sender: FDA-Public Use
  Company Number: US-PFIZER INC-2008041782

PATIENT
  Sex: Female
  Weight: 60.9 kg

DRUGS (4)
  1. LIPITOR [Suspect]
     Indication: BLOOD CHOLESTEROL INCREASED
     Dates: start: 20071201
  2. LEVOTHROID [Concomitant]
     Indication: THYROID DISORDER
  3. ACETYLSALICYLIC ACID SRT [Concomitant]
  4. CALCIUM [Concomitant]

REACTIONS (2)
  - MYALGIA [None]
  - WRONG TECHNIQUE IN DRUG USAGE PROCESS [None]
